FAERS Safety Report 12173032 (Version 3)
Quarter: 2016Q2

REPORT INFORMATION
  Report Type: Spontaneous
  Country: US (occurrence: US)
  Receive Date: 20160311
  Receipt Date: 20160407
  Transmission Date: 20160815
  Serious: Yes (Other)
  Sender: FDA-Public Use
  Company Number: US-ACTAVIS-2016-05584

PATIENT
  Sex: Female

DRUGS (3)
  1. IRINOTECAN HYDROCHLORIDE (ATLLC) [Suspect]
     Active Substance: IRINOTECAN HYDROCHLORIDE
     Indication: PANCREATIC CARCINOMA
     Dosage: UNK UNK, CYCLICAL; 7 CYCLES
     Route: 064
  2. ELOXATIN [Suspect]
     Active Substance: OXALIPLATIN
     Indication: PANCREATIC CARCINOMA
     Dosage: UNK UNK, CYCLICAL; 7 CYCLES
     Route: 064
  3. FLUOROURACIL. [Suspect]
     Active Substance: FLUOROURACIL
     Indication: PANCREATIC CARCINOMA
     Dosage: UNK UNK, CYCLICAL; 7 CYCLES
     Route: 064

REACTIONS (2)
  - Lymphopenia [Recovered/Resolved]
  - Foetal exposure during pregnancy [Recovered/Resolved]
